FAERS Safety Report 8309470-X (Version None)
Quarter: 2012Q2

REPORT INFORMATION
  Report Type: 
  Country: None (occurrence: None)
  Receive Date: 20120420
  Receipt Date: 20120409
  Transmission Date: 20120825
  Serious: Yes (Hospitalization)
  Sender: FDA-Public Use
  Company Number: 3005174370-2012-00009

PATIENT
  Sex: Female

DRUGS (1)
  1. 3M ESPE JUST FOR KIDS 0.4% STANNOUS FLUORIDE [Suspect]
     Dosage: ORAL
     Route: 048

REACTIONS (3)
  - SYNCOPE [None]
  - ACCIDENTAL DRUG INTAKE BY CHILD [None]
  - INTENTIONAL DRUG MISUSE [None]
